FAERS Safety Report 4783385-6 (Version None)
Quarter: 2005Q3

REPORT INFORMATION
  Report Type: 
  Country: None (occurrence: None)
  Receive Date: 20050929
  Receipt Date: 20050922
  Transmission Date: 20060218
  Serious: Yes (Other)
  Sender: FDA-Public Use
  Company Number: CA-ROCHE-418772

PATIENT
  Age: 47 Year
  Sex: Male

DRUGS (7)
  1. NAPROSYN [Suspect]
     Indication: DRUG USE FOR UNKNOWN INDICATION
     Dosage: DOSE DURATION REPORTED AS 3 MONTHS.
     Route: 065
  2. VIOXX [Suspect]
     Indication: DRUG USE FOR UNKNOWN INDICATION
     Dosage: FREQUENCY ^FIRST DOSE^.
     Route: 065
  3. CELEBREX [Suspect]
     Indication: DRUG USE FOR UNKNOWN INDICATION
     Route: 048
  4. HYZAAR [Concomitant]
     Route: 065
  5. METHOTREXATE [Concomitant]
  6. AMLODIPINE [Concomitant]
  7. FOLIC ACID [Concomitant]

REACTIONS (6)
  - ANEURYSM [None]
  - ARTHRITIS [None]
  - BREAST PAIN [None]
  - CHEST PAIN [None]
  - DRUG INEFFECTIVE [None]
  - VOMITING [None]
